FAERS Safety Report 4952057-7 (Version None)
Quarter: 2006Q1

REPORT INFORMATION
  Report Type: 
  Country: None (occurrence: None)
  Receive Date: 20060320
  Receipt Date: 20060306
  Transmission Date: 20060701
  Serious: Yes (Other)
  Sender: FDA-Public Use
  Company Number: 034-0719-M0100007

PATIENT
  Age: 71 Year
  Sex: Male
  Weight: 70 kg

DRUGS (6)
  1. LOPID [Suspect]
     Indication: HYPERLIPIDAEMIA
     Dosage: 600 MG (DAILY), ORAL
     Route: 048
     Dates: start: 19980101
  2. ZENAS MICRO                (CERIVASTATIN SODIUM) [Suspect]
     Indication: HYPERLIPIDAEMIA
     Dosage: 0.4 MG (DAILY), ORAL
     Route: 048
     Dates: start: 20001215, end: 20010110
  3. CARDISER - SLOW RELEASE                    (DILITIAZEM HYDROCHLORIDE) [Concomitant]
  4. GLYBURIDE [Concomitant]
  5. RAMIPRIL [Concomitant]
  6. ACETYLSALICYLIC ACID SRT [Concomitant]

REACTIONS (2)
  - DRUG INTERACTION [None]
  - RHABDOMYOLYSIS [None]
